FAERS Safety Report 12776661 (Version 2)
Quarter: 2016Q4

REPORT INFORMATION
  Report Type: Spontaneous
  Country: US (occurrence: US)
  Receive Date: 20160923
  Receipt Date: 20161102
  Transmission Date: 20170207
  Serious: No
  Sender: FDA-Public Use
  Company Number: US-GLAXOSMITHKLINE-US2016137819

PATIENT
  Age: 57 Year
  Sex: Female

DRUGS (1)
  1. VOLTAREN [Suspect]
     Active Substance: DICLOFENAC SODIUM
     Indication: TENDONITIS
     Dosage: UNK
     Dates: start: 201609

REACTIONS (4)
  - Intentional product use issue [Unknown]
  - Drug administered at inappropriate site [Unknown]
  - Drug ineffective for unapproved indication [Unknown]
  - Inappropriate schedule of drug administration [Unknown]
